FAERS Safety Report 16937585 (Version 1)
Quarter: 2019Q4

REPORT INFORMATION
  Report Type: Spontaneous
  Country: US (occurrence: US)
  Receive Date: 20191018
  Receipt Date: 20191018
  Transmission Date: 20200122
  Serious: Yes (Other)
  Sender: FDA-Public Use
  Company Number: US-SA-2019SA258720

PATIENT
  Age: 67 Year
  Sex: Female

DRUGS (3)
  1. ASPERCREME MAX NO MESS ROLL ON [Suspect]
     Active Substance: MENTHOL
  2. ASPERCREME NOS [Suspect]
     Active Substance: MENTHOL\TROLAMINE SALICYLATE
  3. ASPERCREME WITH LIDOCAINE DRY [Suspect]
     Active Substance: LIDOCAINE

REACTIONS (6)
  - Drug ineffective [Unknown]
  - Unevaluable event [Unknown]
  - Cerebrovascular accident [Unknown]
  - Cerebral haemorrhage [Unknown]
  - Ill-defined disorder [Unknown]
  - Hip arthroplasty [Unknown]

NARRATIVE: CASE EVENT DATE: 20190910
